FAERS Safety Report 11192916 (Version 1)
Quarter: 2015Q2

REPORT INFORMATION
  Report Type: Report from Study
  Country: US (occurrence: None)
  Receive Date: 20150603
  Receipt Date: 20150603
  Transmission Date: 20150821
  Serious: No
  Sender: FDA-Public Use
  Company Number: 2015TASUS000689

PATIENT
  Age: 69 Year
  Sex: Male
  Weight: 90.7 kg

DRUGS (9)
  1. LISINOPRIL (LISINOPRIL DIHYDRATE) [Concomitant]
  2. HETLIOZ [Suspect]
     Active Substance: TASIMELTEON
     Indication: CIRCADIAN RHYTHM SLEEP DISORDER
     Dosage: 20 MG, QD NIGHTLY, ORAL
     Route: 048
     Dates: start: 20150123, end: 20150205
  3. VERAPAMIL (VERAPAMIL HYDROCHLORIDE) [Concomitant]
  4. JANUVIA [Concomitant]
     Active Substance: SITAGLIPTIN PHOSPHATE
  5. REPAGLINIDE. [Concomitant]
     Active Substance: REPAGLINIDE
  6. LANTUS [Concomitant]
     Active Substance: INSULIN GLARGINE
  7. NOVOLOG [Concomitant]
     Active Substance: INSULIN ASPART
  8. ATORVASTATIN [Concomitant]
     Active Substance: ATORVASTATIN
  9. METFORMIN HCL (METFORMIN HYDROCHLORIDE) [Concomitant]
     Active Substance: METFORMIN HYDROCHLORIDE

REACTIONS (3)
  - Blood pressure increased [None]
  - Constipation [None]
  - Hyperglycaemia [None]

NARRATIVE: CASE EVENT DATE: 20150206
